FAERS Safety Report 16593091 (Version 3)
Quarter: 2020Q4

REPORT INFORMATION
  Report Type: Report from Study
  Country: US (occurrence: US)
  Receive Date: 20190718
  Receipt Date: 20201228
  Transmission Date: 20210113
  Serious: Yes (Other)
  Sender: FDA-Public Use
  Company Number: US-JAZZ-2017-US-008677

PATIENT
  Sex: Male

DRUGS (1)
  1. XYREM [Suspect]
     Active Substance: SODIUM OXYBATE
     Indication: HYPERSOMNIA
     Dosage: 2 G, BID
     Route: 048
     Dates: start: 201706

REACTIONS (10)
  - Hyperthyroidism [Not Recovered/Not Resolved]
  - Vitamin D deficiency [Unknown]
  - Anxiety [Unknown]
  - Hypertension [Not Recovered/Not Resolved]
  - Nausea [Unknown]
  - Radioactive iodine therapy [Unknown]
  - Tachyphrenia [Recovered/Resolved]
  - Temperature intolerance [Unknown]
  - Dizziness [Unknown]
  - Sleep disorder [Not Recovered/Not Resolved]
